FAERS Safety Report 8875580 (Version 1)
Quarter: 2012Q4

REPORT INFORMATION
  Report Type: Report from Study
  Country: US (occurrence: US)
  Receive Date: 20121030
  Receipt Date: 20121030
  Transmission Date: 20130627
  Serious: No
  Sender: FDA-Public Use
  Company Number: US-ABBOTT-12P-163-0989233-00

PATIENT
  Sex: Female

DRUGS (1)
  1. KALETRA TABLETS 200/50 [Suspect]
     Indication: PRODUCT USED FOR UNKNOWN INDICATION

REACTIONS (3)
  - Blood cholesterol increased [Not Recovered/Not Resolved]
  - Migraine [Not Recovered/Not Resolved]
  - Hypotension [Not Recovered/Not Resolved]
